FAERS Safety Report 15687115 (Version 1)
Quarter: 2018Q4

REPORT INFORMATION
  Report Type: Spontaneous
  Country: US (occurrence: US)
  Receive Date: 20181204
  Receipt Date: 20181204
  Transmission Date: 20190205
  Serious: Yes (Life-Threatening, Other)
  Sender: FDA-Public Use
  Company Number: US-BIOVITRUM-2017BV000422

PATIENT
  Age: 2 Year
  Sex: Male
  Weight: 14 kg

DRUGS (3)
  1. ALPROLIX [Suspect]
     Active Substance: EFTRENONACOG ALFA
     Indication: FACTOR IX DEFICIENCY
     Dosage: ONE DOSE GIVEN
     Route: 042
     Dates: start: 20171018, end: 20171018
  2. ALPROLIX [Suspect]
     Active Substance: EFTRENONACOG ALFA
     Dosage: ONE DOSAGE FORM
     Route: 042
     Dates: start: 20171018, end: 20171018
  3. ALPROLIX [Suspect]
     Active Substance: EFTRENONACOG ALFA
     Dosage: ONE DOSE GIVEN
     Route: 042
     Dates: start: 20171018, end: 20171018

REACTIONS (1)
  - Anaphylactic reaction [Recovered/Resolved]

NARRATIVE: CASE EVENT DATE: 20171018
